FAERS Safety Report 11069422 (Version 2)
Quarter: 2015Q2

REPORT INFORMATION
  Report Type: Report from Study
  Country: ID (occurrence: ID)
  Receive Date: 20150427
  Receipt Date: 20150507
  Transmission Date: 20150821
  Serious: Yes (Death, Hospitalization, Other)
  Sender: FDA-Public Use
  Company Number: ID-BAYER-2014-158223

PATIENT
  Age: 52 Year
  Sex: Male

DRUGS (5)
  1. REGORAFENIB [Suspect]
     Active Substance: REGORAFENIB
     Indication: COLORECTAL CANCER METASTATIC
     Dosage: DAILY DOSE 160 MG
     Route: 048
     Dates: start: 20141021, end: 20141112
  2. REGORAFENIB [Suspect]
     Active Substance: REGORAFENIB
     Indication: METASTASES TO LIVER
     Dosage: DAILY DOSE 160 MG
     Route: 048
     Dates: start: 20141120, end: 20141211
  3. REGORAFENIB [Suspect]
     Active Substance: REGORAFENIB
     Indication: COLORECTAL CANCER METASTATIC
     Dosage: UNK
     Route: 048
     Dates: start: 20141211, end: 20141217
  4. REGORAFENIB [Suspect]
     Active Substance: REGORAFENIB
     Indication: COLORECTAL CANCER METASTATIC
     Dosage: DAILY DOSE 120 MG
     Route: 048
     Dates: start: 20141218, end: 20150107
  5. REGORAFENIB [Suspect]
     Active Substance: REGORAFENIB
     Indication: COLORECTAL CANCER METASTATIC
     Dosage: DAILY DOSE 120 MG
     Route: 048
     Dates: end: 20150408

REACTIONS (22)
  - Hepatic failure [Fatal]
  - Seizure [None]
  - Oedema [None]
  - Nausea [None]
  - Fatigue [Not Recovered/Not Resolved]
  - Alanine aminotransferase increased [Not Recovered/Not Resolved]
  - Ocular icterus [None]
  - Prothrombin time abnormal [Not Recovered/Not Resolved]
  - Pyrexia [Recovered/Resolved]
  - Cerebral infarction [None]
  - Dysphonia [Recovering/Resolving]
  - Abdominal pain [Recovered/Resolved]
  - Anaemia [Not Recovered/Not Resolved]
  - Ascites [None]
  - Myalgia [Not Recovered/Not Resolved]
  - Diarrhoea [Recovered/Resolved]
  - Aspartate aminotransferase increased [Not Recovered/Not Resolved]
  - Fibrin D dimer increased [Not Recovered/Not Resolved]
  - Colorectal cancer metastatic [None]
  - Activated partial thromboplastin time abnormal [Not Recovered/Not Resolved]
  - Palmar-plantar erythrodysaesthesia syndrome [Recovered/Resolved]
  - Mouth ulceration [Recovered/Resolved]

NARRATIVE: CASE EVENT DATE: 20141021
